FAERS Safety Report 11131167 (Version 2)
Quarter: 2015Q3

REPORT INFORMATION
  Report Type: Spontaneous
  Country: US (occurrence: US)
  Receive Date: 20150522
  Receipt Date: 20150730
  Transmission Date: 20151125
  Serious: Yes (Hospitalization)
  Sender: FDA-Public Use
  Company Number: US-BEH-2015050907

PATIENT
  Age: 28 Year
  Sex: Female

DRUGS (2)
  1. BERINERT [Suspect]
     Active Substance: HUMAN C1-ESTERASE INHIBITOR
     Dosage: APPROX. 30-JAN-2015
     Route: 042
  2. BERINERT [Suspect]
     Active Substance: HUMAN C1-ESTERASE INHIBITOR
     Indication: HEREDITARY ANGIOEDEMA
     Dosage: 01-MAY-2015 09:30
     Route: 042

REACTIONS (8)
  - Exposure during pregnancy [Not Recovered/Not Resolved]
  - Confusional state [Recovered/Resolved]
  - Photopsia [Recovered/Resolved]
  - Speech disorder [Recovered/Resolved]
  - Hypoaesthesia [Recovered/Resolved]
  - Paraesthesia [Recovered/Resolved]
  - Headache [Recovering/Resolving]
  - Memory impairment [Recovered/Resolved]

NARRATIVE: CASE EVENT DATE: 20140912
